FAERS Safety Report 17496406 (Version 1)
Quarter: 2020Q1

REPORT INFORMATION
  Report Type: Spontaneous
  Country: PE (occurrence: PE)
  Receive Date: 20200303
  Receipt Date: 20200303
  Transmission Date: 20200409
  Serious: Yes (Death, Other)
  Sender: FDA-Public Use
  Company Number: PE-AMGEN-PERSP2020036064

PATIENT

DRUGS (1)
  1. ETANERCEPT [Suspect]
     Active Substance: ETANERCEPT
     Indication: PRODUCT USED FOR UNKNOWN INDICATION
     Dosage: 50 MILLIGRAM, QWK
     Route: 065

REACTIONS (2)
  - Sepsis [Unknown]
  - Death [Fatal]
